FAERS Safety Report 13961275 (Version 1)
Quarter: 2017Q3

REPORT INFORMATION
  Report Type: Spontaneous
  Country: JP (occurrence: JP)
  Receive Date: 20170912
  Receipt Date: 20170912
  Transmission Date: 20171128
  Serious: Yes (Other)
  Sender: FDA-Public Use
  Company Number: JP-NOVOPROD-562742

PATIENT
  Age: 65 Year
  Sex: Male
  Weight: 71 kg

DRUGS (10)
  1. NOVORAPID [Suspect]
     Active Substance: INSULIN ASPART
     Indication: TYPE 2 DIABETES MELLITUS
     Dosage: 18 U, QD (5-9-4U/DAY)
     Route: 058
  2. NIFEDIPINE. [Concomitant]
     Active Substance: NIFEDIPINE
     Dosage: 10 MG, QD
     Route: 048
  3. PRAVASTATIN SODIUM. [Concomitant]
     Active Substance: PRAVASTATIN SODIUM
     Dosage: 20 MG, QD
     Route: 048
     Dates: start: 20140313
  4. NOVORAPID [Suspect]
     Active Substance: INSULIN ASPART
     Dosage: 16 U, QD (3-9-4U/DAY)
     Route: 058
     Dates: start: 20140616
  5. OLMETEC [Concomitant]
     Active Substance: OLMESARTAN MEDOXOMIL
     Dosage: 10 MG, QD
     Route: 048
  6. NOVORAPID [Suspect]
     Active Substance: INSULIN ASPART
     Dosage: 11 U, QD ( (3-6-2U/DAY))
     Route: 058
     Dates: start: 20150212
  7. TRESIBA CHU [Concomitant]
     Active Substance: INSULIN DEGLUDEC
     Dosage: 16 U, QD
     Route: 058
     Dates: start: 20140512
  8. TRESIBA CHU [Concomitant]
     Active Substance: INSULIN DEGLUDEC
     Dosage: 13 U, QD
     Route: 058
     Dates: start: 20140616
  9. NOVORAPID [Suspect]
     Active Substance: INSULIN ASPART
     Dosage: 13 U, QD (3-6-4U/DAY)
     Route: 058
     Dates: start: 20140908
  10. TRESIBA CHU [Concomitant]
     Active Substance: INSULIN DEGLUDEC
     Indication: TYPE 2 DIABETES MELLITUS
     Dosage: 20 U, QD (20U/BEFORE BEDTIME)
     Route: 058
     Dates: start: 20140414

REACTIONS (2)
  - Lung adenocarcinoma [Recovered/Resolved]
  - Hypoglycaemia [Recovered/Resolved]

NARRATIVE: CASE EVENT DATE: 20151211
